FAERS Safety Report 7369188 (Version 10)
Quarter: 2013Q3

REPORT INFORMATION
  Report Type: Report from Study
  Country: JP (occurrence: JP)
  Receive Date: 20100428
  Receipt Date: 20130904
  Transmission Date: 20140515
  Serious: Yes (Hospitalization)
  Sender: FDA-Public Use
  Company Number: PHHO2010JP05096

PATIENT
  Age: 53 Year
  Sex: Male
  Weight: 59 kg

DRUGS (16)
  1. AMN107 [Suspect]
     Indication: CHRONIC MYELOID LEUKAEMIA
     Dosage: 600 MG, QD
     Route: 048
     Dates: start: 20080410, end: 20080708
  2. AMN107 [Suspect]
     Dosage: NO TREATMENT RECEIVED
     Dates: start: 20080709, end: 20080729
  3. AMN107 [Suspect]
     Dosage: 400 MG, QD
     Dates: start: 20080730, end: 20081028
  4. AMN107 [Suspect]
     Dosage: 600 MG, QD
     Dates: start: 20081029, end: 20110206
  5. AMN107 [Suspect]
     Dosage: NO TREATMENT RECEIVED
     Dates: start: 20110207, end: 20110208
  6. AMN107 [Suspect]
     Dosage: 600 MG, QD
     Dates: start: 20110209
  7. EUGLUCON [Concomitant]
     Indication: DIABETES MELLITUS
     Dosage: 1.25 MG, UNK
     Route: 048
     Dates: start: 20090909
  8. BASEN [Concomitant]
     Indication: DIABETES MELLITUS
     Dosage: 0.6 MG, UNK
     Route: 048
     Dates: start: 20091105
  9. MEVALOTIN [Concomitant]
     Indication: HYPERLIPIDAEMIA
     Dosage: 10 MG, UNK
     Route: 048
     Dates: start: 20070829
  10. OMEPRAL [Concomitant]
     Indication: GASTRITIS PROPHYLAXIS
     Dosage: 10 MG, UNK
     Route: 048
     Dates: start: 20080502
  11. MAGLAX [Concomitant]
     Indication: CONSTIPATION
     Dosage: 990 MG, UNK
     Route: 048
     Dates: start: 20050119
  12. SENNOSIDE [Concomitant]
     Indication: CONSTIPATION
     Dosage: 24 MG, UNK
     Route: 048
     Dates: start: 20080502
  13. ALOSENN [Concomitant]
     Indication: CONSTIPATION
     Dosage: 1 G, UNK
     Route: 048
  14. MOHRUS [Concomitant]
     Indication: BACK PAIN
     Dosage: UNK
     Route: 062
     Dates: start: 20080405
  15. ARTZ [Concomitant]
     Indication: ARTHRALGIA
     Dosage: UNK
     Route: 054
     Dates: start: 20080516
  16. TAMSULOSIN HYDROCHLORIDE [Concomitant]
     Indication: BENIGN PROSTATIC HYPERPLASIA
     Dosage: 0.2 MG, UNK
     Route: 048
     Dates: start: 20101025

REACTIONS (8)
  - Peripheral arterial occlusive disease [Recovering/Resolving]
  - Peripheral artery thrombosis [Not Recovered/Not Resolved]
  - Pain in extremity [Recovered/Resolved]
  - Hypoaesthesia [Unknown]
  - Wound [Not Recovered/Not Resolved]
  - Aortic calcification [Not Recovered/Not Resolved]
  - Arterial occlusive disease [Not Recovered/Not Resolved]
  - Back pain [Unknown]
